FAERS Safety Report 18880265 (Version 2)
Quarter: 2021Q1

REPORT INFORMATION
  Report Type: Spontaneous
  Country: US (occurrence: US)
  Receive Date: 20210211
  Receipt Date: 20210213
  Transmission Date: 20210420
  Serious: No
  Sender: FDA-Public Use
  Company Number: US-009507513-2010USA008979

PATIENT
  Sex: Female

DRUGS (1)
  1. CELESTONE SOLUSPAN [Suspect]
     Active Substance: BETAMETHASONE ACETATE\BETAMETHASONE SODIUM PHOSPHATE
     Indication: STEROID THERAPY
     Dosage: 2 DOSES OF 12 MILLIGRAMS OF BMZ (IN EQUAL PARTS BETAMETHASONE SODIUM PHOSPHATE AND BETAMETHASONE ACE
     Route: 030

REACTIONS (1)
  - Maternal exposure during pregnancy [Unknown]
